FAERS Safety Report 9540197 (Version 1)
Quarter: 2013Q3

REPORT INFORMATION
  Report Type: Spontaneous
  Country: US (occurrence: US)
  Receive Date: 20130920
  Receipt Date: 20130920
  Transmission Date: 20140515
  Serious: Yes (Hospitalization)
  Sender: FDA-Public Use
  Company Number: US-BRISTOL-MYERS SQUIBB COMPANY-19385376

PATIENT
  Age: 67 Year
  Sex: Female

DRUGS (14)
  1. ELIQUIS [Suspect]
     Indication: ARRHYTHMIA
     Dosage: REDUCED DOSE:2.5 MG ON 9SEP13
     Dates: start: 20130803
  2. LEVOTHYROXINE [Concomitant]
  3. LASIX [Concomitant]
  4. DIGOXIN [Concomitant]
     Dosage: 1/2 TAB
  5. PACERONE [Concomitant]
  6. IMDUR [Concomitant]
  7. PROTONIX [Concomitant]
  8. HYDRALAZINE [Concomitant]
  9. TOPROL XL [Concomitant]
  10. CIPRO [Concomitant]
  11. LANTUS [Concomitant]
     Dosage: 1DF: 30 UNITS/DAY
  12. ATORVASTATIN [Concomitant]
  13. GLYBURIDE + METFORMIN HCL [Concomitant]
     Dosage: 1DF:5/500 MG
  14. K-DUR [Concomitant]
     Dosage: 1DF: 20 UNITS NOS

REACTIONS (2)
  - Palpitations [Unknown]
  - Wrong technique in drug usage process [Unknown]
